FAERS Safety Report 18365995 (Version 1)
Quarter: 2020Q4

REPORT INFORMATION
  Report Type: Spontaneous
  Country: US (occurrence: US)
  Receive Date: 20201009
  Receipt Date: 20201009
  Transmission Date: 20210114
  Serious: Yes (Death)
  Sender: FDA-Public Use
  Company Number: None

PATIENT
  Age: 97 Year
  Sex: Male
  Weight: 53.52 kg

DRUGS (23)
  1. ASPIRIN 81 [Concomitant]
     Active Substance: ASPIRIN
  2. TURMERIC [Concomitant]
     Active Substance: HERBALS\TURMERIC
  3. CAPECITABINE. [Suspect]
     Active Substance: CAPECITABINE
     Indication: PANCREATIC CARCINOMA
     Route: 048
     Dates: start: 20200728, end: 20201009
  4. ALBUTEROL SULFATE HFA [Concomitant]
     Active Substance: ALBUTEROL SULFATE
  5. JANUVIA [Concomitant]
     Active Substance: SITAGLIPTIN PHOSPHATE
  6. CAPECITABINE. [Suspect]
     Active Substance: CAPECITABINE
     Indication: PANCREATIC CARCINOMA
     Route: 048
     Dates: start: 20200728, end: 20201009
  7. AMLODIPINE BESYLATE. [Concomitant]
     Active Substance: AMLODIPINE BESYLATE
  8. VITAMIN D3 [Concomitant]
     Active Substance: CHOLECALCIFEROL
  9. CLOPIDOGREL BISULFATE. [Concomitant]
     Active Substance: CLOPIDOGREL BISULFATE
  10. LANCETS THIN [Concomitant]
  11. MAGNESIUM [Concomitant]
     Active Substance: MAGNESIUM
  12. HYOSCYAMINE SULFATE. [Concomitant]
     Active Substance: HYOSCYAMINE SULFATE
  13. MONTELUKAST SODIUM. [Concomitant]
     Active Substance: MONTELUKAST SODIUM
  14. NITROGLYCERIN. [Concomitant]
     Active Substance: NITROGLYCERIN
  15. UREA. [Concomitant]
     Active Substance: UREA
  16. ACETAMINOPHEN. [Concomitant]
     Active Substance: ACETAMINOPHEN
  17. DOCUSATE SODIUM. [Concomitant]
     Active Substance: DOCUSATE SODIUM
  18. METOPROLOL SUCCINATE ER [Concomitant]
     Active Substance: METOPROLOL SUCCINATE
  19. COENZYME Q10 [Concomitant]
     Active Substance: DIETARY SUPPLEMENT\UBIDECARENONE
  20. ATORVASTATIN CALCIUM. [Concomitant]
     Active Substance: ATORVASTATIN CALCIUM
  21. LOSARTAN POTASSIUM. [Concomitant]
     Active Substance: LOSARTAN POTASSIUM
  22. NATEGLINIDE. [Concomitant]
     Active Substance: NATEGLINIDE
  23. ALIROCUMAB [Concomitant]
     Active Substance: ALIROCUMAB

REACTIONS (1)
  - Death [None]

NARRATIVE: CASE EVENT DATE: 20201009
